FAERS Safety Report 17584561 (Version 2)
Quarter: 2020Q2

REPORT INFORMATION
  Report Type: Spontaneous
  Country: US (occurrence: US)
  Receive Date: 20200326
  Receipt Date: 20200522
  Transmission Date: 20200713
  Serious: No
  Sender: FDA-Public Use
  Company Number: US-BIOGEN-2020BI00850749

PATIENT
  Age: 25 Year
  Sex: Female

DRUGS (1)
  1. TYSABRI [Suspect]
     Active Substance: NATALIZUMAB
     Indication: MULTIPLE SCLEROSIS
     Dosage: INFUSED OVER 1 HOUR
     Route: 042
     Dates: start: 20190422, end: 20200122

REACTIONS (13)
  - Sexually transmitted disease [Unknown]
  - Neurological symptom [Unknown]
  - Fatigue [Unknown]
  - Hypoaesthesia [Unknown]
  - Anxiety [Unknown]
  - Muscle spasms [Unknown]
  - Mean cell volume increased [Unknown]
  - Neuralgia [Unknown]
  - Central nervous system lesion [Unknown]
  - Optic neuropathy [Unknown]
  - Depression [Unknown]
  - Pain [Unknown]
  - Paraesthesia [Unknown]

NARRATIVE: CASE EVENT DATE: 20190815
